FAERS Safety Report 5345282-7 (Version None)
Quarter: 2007Q2

REPORT INFORMATION
  Report Type: 
  Country: None (occurrence: None)
  Receive Date: 20070531
  Receipt Date: 20070516
  Transmission Date: 20071010
  Serious: Yes (Hospitalization, Other)
  Sender: FDA-Public Use
  Company Number: 2007MP000196

PATIENT
  Age: 69 Year
  Sex: Female
  Weight: 72.5755 kg

DRUGS (6)
  1. DACOGEN [Suspect]
     Indication: MYELODYSPLASTIC SYNDROME
     Dosage: SEE IMAGE
     Route: 042
     Dates: start: 20061218, end: 20061222
  2. DACOGEN [Suspect]
     Indication: MYELODYSPLASTIC SYNDROME
     Dosage: SEE IMAGE
     Route: 042
     Dates: start: 20070129, end: 20070202
  3. DACOGEN [Suspect]
     Indication: MYELODYSPLASTIC SYNDROME
     Dosage: SEE IMAGE
     Route: 042
     Dates: start: 20070312, end: 20070316
  4. MSIR (CON.) [Concomitant]
  5. SENOKOT /00142201/ (CON.) [Concomitant]
  6. ZOFRAN (CON.) [Concomitant]

REACTIONS (8)
  - ARTHRALGIA [None]
  - GAIT DISTURBANCE [None]
  - HYPERAESTHESIA [None]
  - JOINT SWELLING [None]
  - PERONEAL NERVE PALSY [None]
  - POLYNEUROPATHY [None]
  - SPINAL COLUMN STENOSIS [None]
  - SPONDYLOLISTHESIS [None]
